FAERS Safety Report 7771006-X (Version None)
Quarter: 2011Q3

REPORT INFORMATION
  Report Type: 
  Country: None (occurrence: None)
  Receive Date: 20110922
  Receipt Date: 20100824
  Transmission Date: 20111222
  Serious: Yes (Other)
  Sender: FDA-Public Use
  Company Number: US-ASTRAZENECA-2010SE39938

PATIENT
  Age: 29 Year
  Sex: Male

DRUGS (3)
  1. SEROQUEL [Suspect]
     Indication: BIPOLAR DISORDER
     Route: 048
  2. TEGRETOL [Concomitant]
  3. SEROQUEL [Suspect]
     Route: 048

REACTIONS (3)
  - SOMNOLENCE [None]
  - SUICIDE ATTEMPT [None]
  - THERAPEUTIC RESPONSE UNEXPECTED [None]
